FAERS Safety Report 26145032 (Version 1)
Quarter: 2025Q4

REPORT INFORMATION
  Report Type: Spontaneous
  Country: US (occurrence: US)
  Receive Date: 20251211
  Receipt Date: 20251211
  Transmission Date: 20260117
  Serious: Yes (Hospitalization)
  Sender: MYLAN
  Company Number: US-MYLANLABS-2025M1104384

PATIENT
  Age: 76 Year
  Sex: Female

DRUGS (2)
  1. METFORMIN [Interacting]
     Active Substance: METFORMIN HYDROCHLORIDE
     Indication: Type 2 diabetes mellitus
     Dosage: 850 MILLIGRAM, BID
  2. BISMUTH SUBSALICYLATE [Interacting]
     Active Substance: BISMUTH SUBSALICYLATE
     Indication: Diarrhoea
     Dosage: 2 LITER (RECEIVED AROUND 2 LITERS OF BISMUTH SUBSALICYLATE TOTAL IN THE LAST TWO WEEKS)

REACTIONS (7)
  - Drug interaction [Recovering/Resolving]
  - Acute kidney injury [Recovering/Resolving]
  - Lactic acidosis [Recovering/Resolving]
  - Hypoglycaemia [Recovering/Resolving]
  - Systemic inflammatory response syndrome [Recovering/Resolving]
  - Pancreatic enzymes increased [Recovering/Resolving]
  - Mental status changes [Recovering/Resolving]
